FAERS Safety Report 21728072 (Version 1)
Quarter: 2022Q4

REPORT INFORMATION
  Report Type: Spontaneous
  Country: US (occurrence: US)
  Receive Date: 20221214
  Receipt Date: 20221214
  Transmission Date: 20230113
  Serious: No
  Sender: FDA-Public Use
  Company Number: US-PFIZER INC-PV202200123469

PATIENT
  Age: 81 Year
  Sex: Male

DRUGS (2)
  1. BRAFTOVI [Suspect]
     Active Substance: ENCORAFENIB
     Dosage: UNK
     Route: 048
  2. CETUXIMAB [Concomitant]
     Active Substance: CETUXIMAB
     Dosage: UNK, WEEKLY

REACTIONS (8)
  - Blood pressure increased [Unknown]
  - Arthralgia [Unknown]
  - Joint stiffness [Unknown]
  - Peripheral swelling [Unknown]
  - Rash [Unknown]
  - Vision blurred [Unknown]
  - Vitreous floaters [Unknown]
  - Fatigue [Unknown]
